FAERS Safety Report 5965807-8 (Version None)
Quarter: 2008Q4

REPORT INFORMATION
  Report Type: 
  Country: None (occurrence: None)
  Receive Date: 20081122
  Receipt Date: 20081122
  Transmission Date: 20090506
  Serious: Yes (Disabling)
  Sender: FDA-Public Use
  Company Number: None

PATIENT
  Sex: Male
  Weight: 77.1115 kg

DRUGS (2)
  1. FLUOROURACIL [Suspect]
     Indication: PIGMENTATION DISORDER
     Dosage: COVER PROBLEM AREA TWICE DAILY
     Dates: start: 20071002, end: 20071016
  2. OMEPRAZOLE [Concomitant]

REACTIONS (3)
  - ALOPECIA [None]
  - APPLICATION SITE BLEEDING [None]
  - APPLICATION SITE ERYTHEMA [None]
